FAERS Safety Report 24942001 (Version 1)
Quarter: 2025Q1

REPORT INFORMATION
  Report Type: Report from Study
  Country: GB (occurrence: GB)
  Receive Date: 20250207
  Receipt Date: 20250207
  Transmission Date: 20250408
  Serious: Yes (Other)
  Sender: SANDOZ
  Company Number: GB-SANDOZ-SDZ2025GB004426

PATIENT
  Sex: Female

DRUGS (2)
  1. OMNITROPE [Suspect]
     Active Substance: SOMATROPIN
     Indication: Product used for unknown indication
     Route: 058
  2. OMNITROPE [Suspect]
     Active Substance: SOMATROPIN
     Route: 058
     Dates: start: 20241223

REACTIONS (7)
  - Road traffic accident [Unknown]
  - Head injury [Unknown]
  - Gait disturbance [Unknown]
  - Tremor [Not Recovered/Not Resolved]
  - Fatigue [Not Recovered/Not Resolved]
  - Product dose omission issue [Unknown]
  - Product availability issue [Unknown]

NARRATIVE: CASE EVENT DATE: 20240101
